FAERS Safety Report 25076406 (Version 1)
Quarter: 2025Q1

REPORT INFORMATION
  Report Type: Spontaneous
  Country: US (occurrence: US)
  Receive Date: 20250313
  Receipt Date: 20250313
  Transmission Date: 20250409
  Serious: No
  Sender: DERMAVANT SCIENCES
  Company Number: US-Dermavant-001990

PATIENT
  Sex: Male

DRUGS (1)
  1. VTAMA [Suspect]
     Active Substance: TAPINAROF
     Indication: Product used for unknown indication

REACTIONS (1)
  - Abnormal dreams [Recovered/Resolved]
